FAERS Safety Report 14521979 (Version 2)
Quarter: 2021Q4

REPORT INFORMATION
  Report Type: Report from Study
  Country: US (occurrence: US)
  Receive Date: 20180212
  Receipt Date: 20211028
  Transmission Date: 20220303
  Serious: Yes (Hospitalization, Other)
  Sender: FDA-Public Use
  Company Number: 2017IN007879

PATIENT

DRUGS (11)
  1. PEGASPARGASE [Suspect]
     Active Substance: PEGASPARGASE
     Indication: Acute lymphocytic leukaemia
     Dosage: 2625 IU, D43
     Dates: start: 20170317
  2. RUXOLITINIB PHOSPHATE [Suspect]
     Active Substance: RUXOLITINIB PHOSPHATE
     Indication: Acute lymphocytic leukaemia
     Dosage: 10 MG, QD
     Route: 048
     Dates: start: 20170303
  3. CYCLOPHOSPHAMIDE [Suspect]
     Active Substance: CYCLOPHOSPHAMIDE
     Indication: Acute lymphocytic leukaemia
     Dosage: 1050 MG, D1 AND D29
     Route: 042
     Dates: start: 20170303
  4. DOXORUBICIN [Suspect]
     Active Substance: DOXORUBICIN
     Indication: Acute lymphocytic leukaemia
     Dosage: 26 MG, D1, D8 AND D15
     Route: 042
     Dates: start: 20170713
  5. THIOGUANINE [Suspect]
     Active Substance: THIOGUANINE
     Indication: Acute lymphocytic leukaemia
     Dosage: 60 MG FOR SIX DAYS/WEEK AND 80 MG FOR 1 DAY/WEEK, D29-D42
     Route: 048
     Dates: start: 20170822
  6. MERCAPTOPURINE [Suspect]
     Active Substance: MERCAPTOPURINE
     Indication: Acute lymphocytic leukaemia
     Dosage: 25 MG, UNK
     Route: 048
     Dates: start: 20170303
  7. METHOTREXATE [Suspect]
     Active Substance: METHOTREXATE
     Indication: Acute lymphocytic leukaemia
     Dosage: 15 MG, D29 AND D36
     Route: 037
     Dates: start: 20170303
  8. METHOTREXATE [Suspect]
     Active Substance: METHOTREXATE
     Dosage: 5250 MG, D1, D15, D29 AND D43
     Route: 042
     Dates: start: 20170509
  9. CYTARABINE [Suspect]
     Active Substance: CYTARABINE
     Indication: Acute lymphocytic leukaemia
     Dosage: 79 MG, D29-D32 AND D36-D39
     Route: 042
     Dates: start: 20170303
  10. VINCRISTINE [Suspect]
     Active Substance: VINCRISTINE
     Indication: Acute lymphocytic leukaemia
     Dosage: 1.6 MG, ON D43
     Route: 042
     Dates: start: 20170317, end: 20170905
  11. DEXAMETHASONE [Suspect]
     Active Substance: DEXAMETHASONE
     Indication: Acute lymphocytic leukaemia
     Dosage: 5.25 MG, BID, D1-D7 AND D15-D21
     Route: 048
     Dates: start: 20170713

REACTIONS (2)
  - Febrile neutropenia [Recovered/Resolved]
  - Anaemia [Recovered/Resolved]

NARRATIVE: CASE EVENT DATE: 20170913
